FAERS Safety Report 17286411 (Version 8)
Quarter: 2020Q3

REPORT INFORMATION
  Report Type: Report from Study
  Country: AU (occurrence: AU)
  Receive Date: 20200114
  Receipt Date: 20200907
  Transmission Date: 20201105
  Serious: Yes (Hospitalization)
  Sender: FDA-Public Use
  Company Number: AU-BEIGENE AUS PTY LTD-BGN-2020-000035

PATIENT

DRUGS (17)
  1. MIRTAZAPINE. [Concomitant]
     Active Substance: MIRTAZAPINE
     Indication: DEPRESSION
     Dosage: 30 MILLIGRAM, AT NIGHT
     Route: 048
     Dates: start: 2016
  2. BGB?3111 [Suspect]
     Active Substance: ZANUBRUTINIB
     Dosage: 160 MILLIGRAM, BID
     Route: 048
     Dates: start: 20200123, end: 20200128
  3. RAMIPRIL. [Concomitant]
     Active Substance: RAMIPRIL
     Indication: HYPERTENSION
     Dosage: 1.25 MILLIGRAM, AT NIGHT
     Route: 048
     Dates: start: 20150128
  4. COLECALCIFEROL [Concomitant]
     Active Substance: CHOLECALCIFEROL
     Indication: OSTEOPOROSIS
     Dosage: 5 MILLIGRAM, QD
     Route: 048
  5. CLEXANE [Concomitant]
     Active Substance: ENOXAPARIN SODIUM
     Indication: THROMBOSIS PROPHYLAXIS
     Dosage: 40 MILLIGRAM, QD
     Route: 058
     Dates: start: 20200109, end: 20200128
  6. RIVAROXABAN [Concomitant]
     Active Substance: RIVAROXABAN
     Indication: ATRIAL FIBRILLATION
     Dosage: 20 MILLIGRAM, QD
     Route: 048
     Dates: start: 20191128, end: 20200107
  7. ASPIRIN. [Concomitant]
     Active Substance: ASPIRIN
     Indication: CARDIAC FAILURE CONGESTIVE
     Dosage: 100 MILLIGRAM, QD
     Route: 048
     Dates: start: 20191220, end: 20200106
  8. BGB?3111 [Suspect]
     Active Substance: ZANUBRUTINIB
     Indication: CENTRAL NERVOUS SYSTEM LYMPHOMA
     Dosage: 160 MILLIGRAM, BID
     Route: 048
     Dates: start: 20191125, end: 20200107
  9. COLOXYL WITH SENNA [Concomitant]
     Active Substance: DOCUSATE SODIUM\SENNOSIDES A AND B
     Indication: CONSTIPATION
     Dosage: 2 DOSAGE FORM, BID PRN
     Route: 048
     Dates: start: 20180129
  10. ROSUVASTATIN. [Concomitant]
     Active Substance: ROSUVASTATIN
     Indication: CARDIAC FAILURE CONGESTIVE
     Dosage: 10 MILLIGRAM, QD
     Route: 048
     Dates: start: 20191016
  11. TISLELIZUMAB. [Suspect]
     Active Substance: TISLELIZUMAB
     Indication: CENTRAL NERVOUS SYSTEM LYMPHOMA
     Dosage: 200 MILLIGRAM, Q3WK
     Route: 042
     Dates: start: 20191125, end: 20200106
  12. LEVOTHYROXINE. [Concomitant]
     Active Substance: LEVOTHYROXINE
     Indication: HYPOTHYROIDISM
     Dosage: 100 MICROGRAM, QD
     Route: 048
  13. METFORMIN [Concomitant]
     Active Substance: METFORMIN HYDROCHLORIDE
     Indication: TYPE 2 DIABETES MELLITUS
     Dosage: 2000 MILLIGRAM, QD, MODIFIED RELEASE
  14. ACLIDINIUM W/FORMOTEROL [Concomitant]
     Indication: CHRONIC OBSTRUCTIVE PULMONARY DISEASE
     Dosage: 352 MICROGRAM, BID
     Dates: start: 2016
  15. SPIRONOLACTONE. [Concomitant]
     Active Substance: SPIRONOLACTONE
     Indication: CARDIAC FAILURE CONGESTIVE
     Dosage: 12.5 MILLIGRAM, QD
     Route: 048
     Dates: start: 20191228
  16. POTASSIUM CHLORIDE. [Concomitant]
     Active Substance: POTASSIUM CHLORIDE
     Indication: CARDIAC FAILURE CONGESTIVE
     Dosage: 600 MILLIGRAM, BID
     Route: 048
  17. FUROSEMIDE. [Concomitant]
     Active Substance: FUROSEMIDE
     Indication: CARDIAC FAILURE CONGESTIVE
     Dosage: 40 MILLIGRAM, BID
     Route: 048
     Dates: start: 2015, end: 20191120

REACTIONS (1)
  - Subdural haematoma [Recovered/Resolved]

NARRATIVE: CASE EVENT DATE: 20200108
